FAERS Safety Report 9002486 (Version 2)
Quarter: 2013Q1

REPORT INFORMATION
  Report Type: Report from Study
  Country: IT (occurrence: IT)
  Receive Date: 20130107
  Receipt Date: 20130111
  Transmission Date: 20140127
  Serious: Yes (Death)
  Sender: FDA-Public Use
  Company Number: IT-PFIZER INC-2013002294

PATIENT
  Age: 27 Year
  Sex: Female
  Weight: 76 kg

DRUGS (1)
  1. CRIZOTINIB [Suspect]
     Dosage: UNK

REACTIONS (4)
  - Headache [Fatal]
  - Diplopia [Fatal]
  - Disease progression [Unknown]
  - Neoplasm malignant [Unknown]
